FAERS Safety Report 13935805 (Version 1)
Quarter: 2017Q3

REPORT INFORMATION
  Report Type: Spontaneous
  Country: US (occurrence: None)
  Receive Date: 20170904
  Receipt Date: 20170904
  Transmission Date: 20171127
  Serious: No
  Sender: FDA-Public Use
  Company Number: None

PATIENT
  Age: 59 Year
  Sex: Female

DRUGS (1)
  1. AMPYRA [Suspect]
     Active Substance: DALFAMPRIDINE
     Indication: MULTIPLE SCLEROSIS
     Route: 048
     Dates: start: 20151022

REACTIONS (4)
  - Pruritus [None]
  - Candida infection [None]
  - Musculoskeletal chest pain [None]
  - Laboratory test abnormal [None]

NARRATIVE: CASE EVENT DATE: 20170901
